FAERS Safety Report 11829676 (Version 2)
Quarter: 2016Q1

REPORT INFORMATION
  Report Type: Spontaneous
  Country: JP (occurrence: JP)
  Receive Date: 20151212
  Receipt Date: 20160210
  Transmission Date: 20160525
  Serious: Yes (Hospitalization, Other)
  Sender: FDA-Public Use
  Company Number: JP-009507513-1512JPN005166

PATIENT
  Age: 59 Year
  Sex: Male
  Weight: 61.6 kg

DRUGS (9)
  1. AMARYL [Concomitant]
     Active Substance: GLIMEPIRIDE
     Dosage: FORMULATION: ^POR^
     Route: 048
  2. SOVALDI [Suspect]
     Active Substance: SOFOSBUVIR
     Indication: CHRONIC HEPATITIS C
     Dosage: 1 DOSAGE FORM, QD. DIVIDED DOSE FREQUENCY UNKNOWN
     Route: 048
     Dates: start: 20151109, end: 20151118
  3. SOVALDI [Suspect]
     Active Substance: SOFOSBUVIR
     Dosage: UNK
     Route: 048
     Dates: start: 20151120
  4. JANUVIA [Concomitant]
     Active Substance: SITAGLIPTIN PHOSPHATE
     Dosage: 50 MG, QD
     Route: 048
  5. REBETOL [Suspect]
     Active Substance: RIBAVIRIN
     Indication: CHRONIC HEPATITIS C
     Dosage: 4 DF, QD
     Route: 048
     Dates: start: 20151109, end: 20151118
  6. AMLODIN (AMLODIPINE BESYLATE) [Concomitant]
     Active Substance: AMLODIPINE BESYLATE
     Dosage: FORMULATION: ^POR^
     Route: 048
  7. REBETOL [Suspect]
     Active Substance: RIBAVIRIN
     Dosage: UNK
     Route: 048
     Dates: start: 20151120
  8. URSO [Concomitant]
     Active Substance: URSODIOL
     Dosage: FORMULATION: ^POR^
     Route: 048
  9. GLIMEPIRIDE. [Concomitant]
     Active Substance: GLIMEPIRIDE
     Dosage: 0.5 MG, QD
     Route: 048

REACTIONS (1)
  - Cerebral haemorrhage [Recovered/Resolved]

NARRATIVE: CASE EVENT DATE: 20151116
